FAERS Safety Report 5098939-X (Version None)
Quarter: 2006Q3

REPORT INFORMATION
  Report Type: 
  Country: None (occurrence: None)
  Receive Date: 20060907
  Receipt Date: 20060712
  Transmission Date: 20061208
  Serious: Yes (Disabling, Other)
  Sender: FDA-Public Use
  Company Number: 2006UW14378

PATIENT
  Age: 47 Year
  Sex: Female
  Weight: 80.5 kg

DRUGS (3)
  1. SEROQUEL [Suspect]
     Indication: ADJUSTMENT DISORDER
     Route: 048
     Dates: start: 20060705, end: 20060708
  2. SYNTHROID [Concomitant]
     Dosage: LOW DOSE
  3. PREVACID [Concomitant]
     Indication: GASTROOESOPHAGEAL REFLUX DISEASE
     Route: 048

REACTIONS (7)
  - ABDOMINAL PAIN [None]
  - APHASIA [None]
  - DIARRHOEA [None]
  - DIZZINESS [None]
  - HYPERSENSITIVITY [None]
  - LOSS OF CONSCIOUSNESS [None]
  - SWOLLEN TONGUE [None]
